FAERS Safety Report 20378471 (Version 1)
Quarter: 2022Q1

REPORT INFORMATION
  Report Type: Spontaneous
  Country: US (occurrence: None)
  Receive Date: 20220125
  Receipt Date: 20220125
  Transmission Date: 20220423
  Serious: Yes (Death)
  Sender: FDA-Public Use
  Company Number: None

PATIENT
  Age: 74 Year
  Sex: Male
  Weight: 87.3 kg

DRUGS (4)
  1. TOCILIZUMAB [Suspect]
     Active Substance: TOCILIZUMAB
     Indication: COVID-19
     Dosage: FREQUENCY : ONCE;?
     Route: 042
     Dates: start: 20220118, end: 20220118
  2. TOCILIZUMAB [Suspect]
     Active Substance: TOCILIZUMAB
     Indication: COVID-19
     Dosage: FREQUENCY : ONCE;?
     Route: 042
     Dates: start: 20220118, end: 20220118
  3. DEXAMETHASONE [Concomitant]
     Active Substance: DEXAMETHASONE
     Dates: start: 20220118, end: 20220122
  4. CEFEPIME [Concomitant]
     Active Substance: CEFEPIME HYDROCHLORIDE
     Dates: start: 20220118, end: 20220121

REACTIONS (10)
  - Platelet count decreased [None]
  - Troponin increased [None]
  - Acute myocardial infarction [None]
  - PaO2/FiO2 ratio decreased [None]
  - Haemoglobin decreased [None]
  - Renal tubular necrosis [None]
  - Prerenal failure [None]
  - Hyporesponsive to stimuli [None]
  - Cerebral infarction [None]
  - Cerebellar infarction [None]

NARRATIVE: CASE EVENT DATE: 20220122
